FAERS Safety Report 17081985 (Version 2)
Quarter: 2019Q4

REPORT INFORMATION
  Report Type: Spontaneous
  Country: US (occurrence: US)
  Receive Date: 20191127
  Receipt Date: 20191209
  Transmission Date: 20200122
  Serious: Yes (Disabling, Other)
  Sender: FDA-Public Use
  Company Number: US-PFIZER INC-2018023968

PATIENT
  Age: 62 Year
  Sex: Female
  Weight: 134.3 kg

DRUGS (5)
  1. ATORVASTATIN [Concomitant]
     Active Substance: ATORVASTATIN
     Dosage: UNK (IN THE MORNING)
  2. RANITIDINE. [Concomitant]
     Active Substance: RANITIDINE
     Dosage: 600 MG, UNK (DOUBLE DOSE IN THE MORNING)
  3. ELIQUIS [Concomitant]
     Active Substance: APIXABAN
     Indication: ANTICOAGULANT THERAPY
     Dosage: UNK (STARTED 6 YEARS AGO )
  4. TIKOSYN [Suspect]
     Active Substance: DOFETILIDE
     Indication: ATRIAL FIBRILLATION
     Dosage: 500 MG, 2X/DAY (500 MG TW DAY)
     Dates: start: 201507
  5. TIKOSYN [Suspect]
     Active Substance: DOFETILIDE
     Indication: ATRIAL FIBRILLATION

REACTIONS (3)
  - Drug dependence [Unknown]
  - Atrial fibrillation [Unknown]
  - Wrong dosage form [Unknown]
